FAERS Safety Report 7301470-1 (Version None)
Quarter: 2011Q1

REPORT INFORMATION
  Report Type: 
  Country: None (occurrence: None)
  Receive Date: 20110218
  Receipt Date: 20110215
  Transmission Date: 20110831
  Serious: Yes (Hospitalization, Other)
  Sender: FDA-Public Use
  Company Number: DE-ABBOTT-10P-062-0687492-00

PATIENT
  Sex: Female
  Weight: 87 kg

DRUGS (6)
  1. HUMIRA [Suspect]
     Indication: RHEUMATOID ARTHRITIS
     Route: 058
     Dates: start: 20080301, end: 20101001
  2. CELEBREX [Concomitant]
     Indication: PRODUCT USED FOR UNKNOWN INDICATION
  3. B-BLOCKER [Concomitant]
     Indication: PRODUCT USED FOR UNKNOWN INDICATION
  4. CORTISON [Concomitant]
     Indication: RHEUMATOID ARTHRITIS
  5. MICARDIS [Concomitant]
     Indication: PRODUCT USED FOR UNKNOWN INDICATION
  6. HUMIRA [Suspect]
     Dates: start: 20110210

REACTIONS (3)
  - AUTOIMMUNE THYROIDITIS [None]
  - EYE DISORDER [None]
  - VISUAL IMPAIRMENT [None]
